FAERS Safety Report 12299323 (Version 2)
Quarter: 2016Q3

REPORT INFORMATION
  Report Type: Spontaneous
  Country: NL (occurrence: NL)
  Receive Date: 20160425
  Receipt Date: 20160706
  Transmission Date: 20161109
  Serious: Yes (Other)
  Sender: FDA-Public Use
  Company Number: NL-TEVA-653347ACC

PATIENT
  Age: 20 Year
  Sex: Female
  Weight: 60 kg

DRUGS (2)
  1. YASMINELLE TABLET OMHULD - NON-CURRENT DRUG [Concomitant]
     Dosage: ONCE DAILY ONE PIECE
     Route: 048
     Dates: start: 20140601
  2. AMOXICILLINE CAPSULE 375MG [Suspect]
     Active Substance: AMOXICILLIN
     Indication: NASOPHARYNGITIS
     Dosage: 1125 MILLIGRAM DAILY; 3 TIMES DAILY ONE PIECE
     Route: 048
     Dates: start: 20160317, end: 20160318

REACTIONS (5)
  - Swelling face [Not Recovered/Not Resolved]
  - Blood pressure decreased [Recovered/Resolved with Sequelae]
  - Pain [Not Recovered/Not Resolved]
  - Rash generalised [Recovering/Resolving]
  - Pruritus [Not Recovered/Not Resolved]

NARRATIVE: CASE EVENT DATE: 20160317
